FAERS Safety Report 5934828-3 (Version None)
Quarter: 2008Q4

REPORT INFORMATION
  Report Type: 
  Country: None (occurrence: None)
  Receive Date: 20081029
  Receipt Date: 20081021
  Transmission Date: 20090506
  Serious: Yes (Hospitalization)
  Sender: FDA-Public Use
  Company Number: US-GENENTECH-268826

PATIENT
  Sex: Female
  Weight: 82.2 kg

DRUGS (13)
  1. BEVACIZUMAB [Suspect]
     Indication: OVARIAN CANCER
     Dosage: 10 MG/KG, Q2W
     Route: 042
     Dates: start: 20061002, end: 20080902
  2. TOPOTECAN [Suspect]
     Indication: OVARIAN CANCER
     Dosage: 4 MG/M2, Q3W
     Route: 042
     Dates: start: 20061002, end: 20080902
  3. ATENOLOL [Concomitant]
     Indication: HYPERTENSION
     Dosage: 25 MG, QD
     Route: 048
  4. LEVOXYL [Concomitant]
     Indication: HYPOTHYROIDISM
     Dosage: 0.088 MG, QD
     Route: 048
  5. ATORVASTATIN [Concomitant]
     Indication: HYPERTENSION
  6. DARBEPOETIN ALFA [Concomitant]
     Indication: ANAEMIA
  7. CARBIDOPA AND LEVODOPA [Concomitant]
     Indication: DRUG USE FOR UNKNOWN INDICATION
     Dosage: UNK
  8. AMLODIPINE [Concomitant]
     Indication: DRUG USE FOR UNKNOWN INDICATION
     Dosage: 5 MG, QD
     Route: 048
  9. AMBIEN [Concomitant]
     Indication: DRUG USE FOR UNKNOWN INDICATION
     Dosage: UNK
  10. LORAZEPAM [Concomitant]
     Indication: PREMEDICATION
  11. ONDANSETRON [Concomitant]
     Indication: PREMEDICATION
  12. ASPIRIN [Concomitant]
     Indication: DRUG USE FOR UNKNOWN INDICATION
  13. PLAVIX [Concomitant]
     Indication: DRUG USE FOR UNKNOWN INDICATION

REACTIONS (1)
  - CORONARY ARTERY STENOSIS [None]
